FAERS Safety Report 20733047 (Version 1)
Quarter: 2022Q2

REPORT INFORMATION
  Report Type: Spontaneous
  Country: US (occurrence: US)
  Receive Date: 20220421
  Receipt Date: 20220421
  Transmission Date: 20220721
  Serious: No
  Sender: FDA-Public Use
  Company Number: US-drreddys-SPO/USA/22/0148964

PATIENT
  Age: 19 Year

DRUGS (2)
  1. ACCUTANE [Suspect]
     Active Substance: ISOTRETINOIN
     Indication: Product used for unknown indication
     Dosage: RMA ISSUE DATE: 10 MARCH 2022 12:30:49 PM, 10 FEBRUARY 2022 12:54:12 PM AND 11 JANUARY 2022 05:27:57
  2. ACCUTANE [Suspect]
     Active Substance: ISOTRETINOIN
     Dosage: RMA ISSUE DATE: 9 DECEMBER 2021 12:00:00 AM

REACTIONS (1)
  - Migraine [Unknown]
